FAERS Safety Report 5742386-1 (Version None)
Quarter: 2008Q2

REPORT INFORMATION
  Report Type: 
  Country: None (occurrence: None)
  Receive Date: 20080515
  Receipt Date: 20080430
  Transmission Date: 20081010
  Serious: Yes (Other)
  Sender: FDA-Public Use
  Company Number: S08-GER-01529-01

PATIENT
  Age: 75 Year
  Sex: Female

DRUGS (16)
  1. ESCITALOPRAM [Suspect]
     Dosage: 30 MG QD PO
     Route: 048
  2. LITHIUM CARBONATE [Suspect]
     Dosage: 225 QD
  3. EHAHEXAL (ENALAPRIL MALEATE) [Suspect]
     Dosage: 10 MG QD
  4. ESIDRIX [Suspect]
     Dosage: 25 MG QD
  5. TRVILOR (VENLAFAXINE HYDROCHLORIDE) [Suspect]
     Dosage: 75 MG QD
     Dates: end: 20041214
  6. VENLAFAXINE HCL [Suspect]
     Dosage: 75 MG QD
     Dates: start: 20050111, end: 20060116
  7. RYTHMONORM (PROPAFENONE HYDRCHLORIDE) [Concomitant]
  8. NORVASC [Concomitant]
  9. SORTIS (ATORVASTATIN) [Concomitant]
  10. RESTEX [Concomitant]
  11. POTASSIUM CHLORIDE [Concomitant]
  12. ACIMETHIN (METHIONINE) [Concomitant]
  13. CEBION (ASCORBIC ACID) [Concomitant]
  14. PANTOZOL (PANTOPRAOZLE SODIUM) [Concomitant]
  15. NULYTELY [Concomitant]
  16. MARCUMAR (PHENPROPCPUMON) [Concomitant]

REACTIONS (9)
  - ATAXIA [None]
  - BLOOD ALKALINE PHOSPHATASE INCREASED [None]
  - CONSTIPATION [None]
  - DEPRESSION [None]
  - DISEASE RECURRENCE [None]
  - DRUG INTERACTION [None]
  - FALL [None]
  - GAIT DISTURBANCE [None]
  - OVERDOSE [None]
